FAERS Safety Report 8421590-8 (Version None)
Quarter: 2012Q2

REPORT INFORMATION
  Report Type: 
  Country: None (occurrence: None)
  Receive Date: 20120608
  Receipt Date: 20120524
  Transmission Date: 20120825
  Serious: Yes (Hospitalization)
  Sender: FDA-Public Use
  Company Number: FR-TEVA-341319ISR

PATIENT
  Sex: Male
  Weight: 50 kg

DRUGS (6)
  1. VINCRISTINE [Suspect]
     Indication: LYMPHOMA
     Route: 042
     Dates: start: 20110113
  2. PRDNISOLONE ARROW [Suspect]
     Indication: LYMPHOMA
     Dosage: 40 MG/M2;
     Route: 048
     Dates: start: 20110113, end: 20110117
  3. CYCLOPHOSPHAMIDE [Suspect]
     Indication: LYMPHOMA
     Route: 042
     Dates: start: 20110113
  4. DOXORUBICIN HCL [Suspect]
     Indication: LYMPHOMA
     Route: 042
     Dates: start: 20110113
  5. MABTHERA [Suspect]
     Indication: LYMPHOMA
     Route: 042
     Dates: start: 20110113
  6. NEXIUM [Concomitant]
     Dosage: 40 MILLIGRAM;
     Route: 048

REACTIONS (3)
  - FEBRILE NEUTROPENIA [None]
  - PNEUMOCYSTIS JIROVECI PNEUMONIA [None]
  - PANCYTOPENIA [None]
